FAERS Safety Report 18191297 (Version 14)
Quarter: 2022Q4

REPORT INFORMATION
  Report Type: Spontaneous
  Country: US (occurrence: US)
  Receive Date: 20200825
  Receipt Date: 20221108
  Transmission Date: 20230113
  Serious: No
  Sender: FDA-Public Use
  Company Number: US-DSJP-DSU-2020-124161

PATIENT
  Age: 50 Year
  Sex: Male

DRUGS (2)
  1. TURALIO [Suspect]
     Active Substance: PEXIDARTINIB HYDROCHLORIDE
     Indication: Giant cell tumour of tendon sheath
     Dosage: 400 MG, BID
     Route: 048
     Dates: start: 20200813
  2. TURALIO [Suspect]
     Active Substance: PEXIDARTINIB HYDROCHLORIDE
     Indication: Synovitis

REACTIONS (8)
  - Fatigue [Recovered/Resolved]
  - Product dose omission issue [Not Recovered/Not Resolved]
  - Unevaluable event [Unknown]
  - Treatment noncompliance [Unknown]
  - Tooth extraction [Recovered/Resolved]
  - Peripheral swelling [Not Recovered/Not Resolved]
  - Therapy interrupted [Unknown]
  - Product communication issue [Unknown]

NARRATIVE: CASE EVENT DATE: 20200801
